FAERS Safety Report 8095102-5 (Version None)
Quarter: 2011Q4

REPORT INFORMATION
  Report Type: 
  Country: None (occurrence: None)
  Receive Date: 20111222
  Receipt Date: 20111102
  Transmission Date: 20120403
  Serious: Yes (Hospitalization)
  Sender: FDA-Public Use
  Company Number: UTC-011953

PATIENT
  Age: 36 Year
  Sex: Female
  Weight: 175 kg

DRUGS (5)
  1. TYVASO [Suspect]
     Indication: COR PULMONALE CHRONIC
     Dosage: 216 MCG (54 MCG, 4 IN 1 D),INHALATION
     Route: 055
     Dates: start: 20110615
  2. ADCIRCA [Concomitant]
  3. DIURETICS (DIURETICS) [Concomitant]
  4. OXYGEN (OXYGEN) [Concomitant]
  5. TRACLEER [Concomitant]

REACTIONS (2)
  - ROAD TRAFFIC ACCIDENT [None]
  - NECK INJURY [None]
